FAERS Safety Report 8817253 (Version 1)
Quarter: 2012Q4

REPORT INFORMATION
  Report Type: 
  Country: None (occurrence: US)
  Receive Date: 20121004
  Receipt Date: 20121004
  Transmission Date: 20130627
  Serious: Yes (Other)
  Sender: FDA-Public Use
  Company Number: US-TEVA-362067USA

PATIENT
  Age: 30 Year
  Sex: Female

DRUGS (1)
  1. COPAXONE [Suspect]
     Indication: MULTIPLE SCLEROSIS

REACTIONS (3)
  - Pharyngeal oedema [Unknown]
  - Swelling face [Unknown]
  - Dyspnoea [Unknown]
